FAERS Safety Report 14280769 (Version 2)
Quarter: 2018Q2

REPORT INFORMATION
  Report Type: Spontaneous
  Country: CA (occurrence: CA)
  Receive Date: 20171213
  Receipt Date: 20180424
  Transmission Date: 20180711
  Serious: Yes (Other)
  Sender: FDA-Public Use
  Company Number: CA-MYLANLABS-2017M1078279

PATIENT
  Age: 70 Year
  Sex: Female

DRUGS (2)
  1. ESTROGEL [Suspect]
     Active Substance: ESTRADIOL
     Indication: MENOPAUSE
     Dosage: 1 OR 2 PUMPS DAILY
     Route: 062
  2. PROMETRIUM [Suspect]
     Active Substance: PROGESTERONE
     Indication: MENOPAUSE
     Dosage: 100 MG, ONCE DAILY (100 MG, 1 IN 1 D)
     Route: 048
     Dates: start: 201705

REACTIONS (7)
  - Back pain [Not Recovered/Not Resolved]
  - Shoulder operation [Unknown]
  - Malaise [Unknown]
  - Off label use [Not Recovered/Not Resolved]
  - Neck pain [Unknown]
  - Osteoarthritis [Unknown]
  - Intervertebral disc degeneration [Unknown]

NARRATIVE: CASE EVENT DATE: 201705
